FAERS Safety Report 21505528 (Version 1)
Quarter: 2022Q4

REPORT INFORMATION
  Report Type: Spontaneous
  Country: DE (occurrence: DE)
  Receive Date: 20221026
  Receipt Date: 20221026
  Transmission Date: 20230113
  Serious: Yes (Hospitalization, Other)
  Sender: FDA-Public Use
  Company Number: DE-ALKEM LABORATORIES LIMITED-DE-ALKEM-2022-10993

PATIENT
  Sex: Male
  Weight: 80 kg

DRUGS (2)
  1. DEFERASIROX [Suspect]
     Active Substance: DEFERASIROX
     Indication: Myelodysplastic syndrome
     Dosage: 2160 MILLIGRAM, QD,  EVERY 1 DAY
     Route: 048
     Dates: start: 202010, end: 20210220
  2. DEFERASIROX [Suspect]
     Active Substance: DEFERASIROX
     Dosage: UNK
     Route: 065

REACTIONS (4)
  - Hepatic failure [Recovered/Resolved]
  - Coagulation time shortened [Recovered/Resolved]
  - Gastrointestinal disorder [Recovered/Resolved]
  - Transaminases increased [Recovered/Resolved]

NARRATIVE: CASE EVENT DATE: 20210215
